FAERS Safety Report 11157539 (Version 8)
Quarter: 2017Q1

REPORT INFORMATION
  Report Type: Report from Study
  Country: CA (occurrence: CA)
  Receive Date: 20150603
  Receipt Date: 20170310
  Transmission Date: 20170428
  Serious: Yes (Life-Threatening, Other)
  Sender: FDA-Public Use
  Company Number: CA-ROCHE-1564671

PATIENT
  Age: 72 Year
  Sex: Female

DRUGS (8)
  1. ACTEMRA [Suspect]
     Active Substance: TOCILIZUMAB
     Indication: POLYARTHRITIS
     Dosage: LAST DOSE RECEIVED ON 08/JUN/2015
     Route: 058
     Dates: start: 20150330
  2. VITAMIN B12 [Concomitant]
     Active Substance: CYANOCOBALAMIN
  3. MONOPRIL [Concomitant]
     Active Substance: FOSINOPRIL SODIUM
  4. GLUCOPHAGE [Concomitant]
     Active Substance: METFORMIN HYDROCHLORIDE
  5. PREDNISONE. [Suspect]
     Active Substance: PREDNISONE
     Indication: PRODUCT USED FOR UNKNOWN INDICATION
     Route: 065
     Dates: start: 20150317, end: 201602
  6. METHOTREXATE. [Suspect]
     Active Substance: METHOTREXATE
     Indication: PRODUCT USED FOR UNKNOWN INDICATION
     Route: 065
  7. DIAMICRON [Concomitant]
     Active Substance: GLICLAZIDE
  8. ASA [Suspect]
     Active Substance: ASPIRIN
     Indication: PRODUCT USED FOR UNKNOWN INDICATION
     Route: 065

REACTIONS (16)
  - Back pain [Unknown]
  - Bone pain [Not Recovered/Not Resolved]
  - Fungal skin infection [Unknown]
  - Blister [Recovered/Resolved]
  - Hypoaesthesia [Unknown]
  - Cerebrovascular accident [Unknown]
  - Paraesthesia [Unknown]
  - Oral herpes [Not Recovered/Not Resolved]
  - Headache [Unknown]
  - Erythema [Recovered/Resolved]
  - Alopecia [Unknown]
  - Muscle spasms [Unknown]
  - Transient ischaemic attack [Unknown]
  - Contusion [Unknown]
  - Headache [Not Recovered/Not Resolved]
  - Insomnia [Unknown]

NARRATIVE: CASE EVENT DATE: 20150506
